FAERS Safety Report 21061993 (Version 2)
Quarter: 2022Q3

REPORT INFORMATION
  Report Type: Spontaneous
  Country: DE (occurrence: DE)
  Receive Date: 20220710
  Receipt Date: 20220920
  Transmission Date: 20221027
  Serious: Yes (Hospitalization)
  Sender: FDA-Public Use
  Company Number: None

PATIENT
  Age: 56 Year
  Sex: Male
  Weight: 73 kg

DRUGS (2)
  1. ROTIGOTINE [Suspect]
     Active Substance: ROTIGOTINE
     Indication: Restless legs syndrome
     Dosage: 2 MG/ 24 H
     Route: 062
     Dates: start: 20210701, end: 20220623
  2. ROTIGOTINE [Suspect]
     Active Substance: ROTIGOTINE
     Indication: Radiculopathy

REACTIONS (5)
  - Hospitalisation [Unknown]
  - Pruritus [Not Recovered/Not Resolved]
  - Skin swelling [Not Recovered/Not Resolved]
  - Erythema [Not Recovered/Not Resolved]
  - Product use in unapproved indication [Unknown]

NARRATIVE: CASE EVENT DATE: 20210701
